FAERS Safety Report 4471746-4 (Version None)
Quarter: 2004Q4

REPORT INFORMATION
  Report Type: 
  Country: None (occurrence: None)
  Receive Date: 20041007
  Receipt Date: 20040927
  Transmission Date: 20050328
  Serious: Yes (Other)
  Sender: FDA-Public Use
  Company Number: 2004235467AU

PATIENT
  Age: 73 Year
  Sex: Male

DRUGS (1)
  1. CABERGOLINE [Suspect]
     Indication: PARKINSON'S DISEASE

REACTIONS (2)
  - ARRHYTHMIA [None]
  - ATRIOVENTRICULAR BLOCK [None]
